FAERS Safety Report 13043355 (Version 1)
Quarter: 2016Q4

REPORT INFORMATION
  Report Type: Spontaneous
  Country: US (occurrence: US)
  Receive Date: 20161220
  Receipt Date: 20161220
  Transmission Date: 20170207
  Serious: No
  Sender: FDA-Public Use
  Company Number: US-BAUSCH-BL-2015-029578

PATIENT
  Age: 29 Year
  Sex: Female
  Weight: 47.67 kg

DRUGS (3)
  1. CLINDAMYCIN. [Suspect]
     Active Substance: CLINDAMYCIN
     Indication: ACNE
     Route: 061
     Dates: start: 2015
  2. ZIANA [Suspect]
     Active Substance: CLINDAMYCIN PHOSPHATE\TRETINOIN
     Indication: ACNE
     Dosage: AS DIRECTED
     Route: 061
     Dates: start: 20151007, end: 20151022
  3. SOLODYN [Suspect]
     Active Substance: MINOCYCLINE HYDROCHLORIDE
     Indication: ACNE
     Route: 065
     Dates: start: 201510

REACTIONS (4)
  - Application site erythema [Recovering/Resolving]
  - Drug dose omission [Unknown]
  - Acne pustular [Recovering/Resolving]
  - Hypersensitivity [Recovering/Resolving]

NARRATIVE: CASE EVENT DATE: 2015
